FAERS Safety Report 16589366 (Version 2)
Quarter: 2019Q3

REPORT INFORMATION
  Report Type: Spontaneous
  Country: US (occurrence: US)
  Receive Date: 20190718
  Receipt Date: 20190809
  Transmission Date: 20191004
  Serious: No
  Sender: FDA-Public Use
  Company Number: US-HORIZON-PRO-0145-2019

PATIENT
  Age: 10 Year
  Sex: Male

DRUGS (9)
  1. DIARYLIMIDAZOLE [Concomitant]
  2. LISINOPRIL. [Concomitant]
     Active Substance: LISINOPRIL
  3. FAMOTIDINE. [Concomitant]
     Active Substance: FAMOTIDINE
  4. CALCITRIOL. [Concomitant]
     Active Substance: CALCITRIOL
  5. LEVOCARNITINE. [Concomitant]
     Active Substance: LEVOCARNITINE
  6. SODIUM CHLORIDE. [Concomitant]
     Active Substance: SODIUM CHLORIDE
  7. PROCYSBI [Suspect]
     Active Substance: CYSTEAMINE BITARTRATE
     Indication: CYSTINOSIS
     Dosage: 1200 MG DAILY DOSE
     Dates: start: 20160609, end: 20190709
  8. POTASSIUM PHOSOPHATE-SODIUM PHOSPHATE [Concomitant]
  9. POTASSIUM CHLORIDE. [Concomitant]
     Active Substance: POTASSIUM CHLORIDE

REACTIONS (3)
  - Vomiting [Recovered/Resolved]
  - Amino acid level increased [Recovering/Resolving]
  - Nausea [Recovering/Resolving]

NARRATIVE: CASE EVENT DATE: 20190521
